FAERS Safety Report 13638982 (Version 2)
Quarter: 2017Q3

REPORT INFORMATION
  Report Type: Other
  Country: FR (occurrence: FR)
  Receive Date: 20170609
  Receipt Date: 20170710
  Transmission Date: 20171127
  Serious: Yes (Life-Threatening)
  Sender: FDA-Public Use
  Company Number: FR-SEATTLE GENETICS-2017SGN01399

PATIENT
  Age: 75 Year
  Sex: Male

DRUGS (2)
  1. ADCETRIS [Suspect]
     Active Substance: BRENTUXIMAB VEDOTIN
     Indication: MYCOSIS FUNGOIDES
     Dosage: 119 MG, UNK
     Route: 042
     Dates: start: 20170509, end: 20170509
  2. BENDAMUSTINE HYDROCHLORIDE. [Suspect]
     Active Substance: BENDAMUSTINE HYDROCHLORIDE
     Indication: MYCOSIS FUNGOIDES
     Dosage: 160 MG, UNK
     Route: 042
     Dates: start: 20170509, end: 20170509

REACTIONS (2)
  - Cytomegalovirus infection [Recovered/Resolved]
  - Cytokine release syndrome [Recovered/Resolved]

NARRATIVE: CASE EVENT DATE: 20170512
